FAERS Safety Report 7966649-4 (Version None)
Quarter: 2011Q4

REPORT INFORMATION
  Report Type: 
  Country: None (occurrence: None)
  Receive Date: 20111209
  Receipt Date: 20111202
  Transmission Date: 20120403
  Serious: No
  Sender: FDA-Public Use
  Company Number: US-BIOGENIDEC-2011BI036558

PATIENT
  Age: 37 Year
  Sex: Female

DRUGS (3)
  1. TYSABRI [Suspect]
     Indication: MULTIPLE SCLEROSIS
     Route: 042
     Dates: start: 20090708, end: 20111003
  2. TYSABRI [Suspect]
     Route: 042
     Dates: start: 20080303, end: 20090122
  3. TYSABRI [Suspect]
     Route: 042
     Dates: start: 20070101

REACTIONS (1)
  - URINARY TRACT INFECTION [None]
